FAERS Safety Report 7754618-9 (Version None)
Quarter: 2011Q3

REPORT INFORMATION
  Report Type: 
  Country: None (occurrence: None)
  Receive Date: 20110915
  Receipt Date: 20110907
  Transmission Date: 20111222
  Serious: Yes (Hospitalization)
  Sender: FDA-Public Use
  Company Number: US-MERCK-1109USA00654

PATIENT
  Age: 81 Year
  Sex: Female

DRUGS (2)
  1. FORTEO [Concomitant]
     Indication: BONE DISORDER
     Route: 065
  2. FOSAMAX [Suspect]
     Route: 048

REACTIONS (1)
  - FRACTURE [None]
